FAERS Safety Report 11742868 (Version 3)
Quarter: 2016Q4

REPORT INFORMATION
  Report Type: Spontaneous
  Country: FR (occurrence: FR)
  Receive Date: 20151116
  Receipt Date: 20161123
  Transmission Date: 20170206
  Serious: Yes (Disabling, Congenital Anomaly)
  Sender: FDA-Public Use
  Company Number: FR-ABBVIE-15P-056-1500252-00

PATIENT
  Sex: Female

DRUGS (2)
  1. MICROPAKINE L.P. [Suspect]
     Active Substance: VALPROATE SODIUM
     Indication: MATERNAL EXPOSURE TIMING UNSPECIFIED
     Route: 064
  2. DEPAKINE CHRONO [Suspect]
     Active Substance: VALPROATE SODIUM
     Indication: MATERNAL EXPOSURE TIMING UNSPECIFIED
     Route: 064

REACTIONS (33)
  - Foot deformity [Not Recovered/Not Resolved]
  - Bronchiolitis [None]
  - Congenital tongue anomaly [Not Recovered/Not Resolved]
  - Skull malformation [Not Recovered/Not Resolved]
  - Tooth development disorder [Not Recovered/Not Resolved]
  - Patent ductus arteriosus [None]
  - Disease recurrence [None]
  - Heart disease congenital [Not Recovered/Not Resolved]
  - Intellectual disability [Not Recovered/Not Resolved]
  - Language disorder [Not Recovered/Not Resolved]
  - Neonatal respiratory distress syndrome [None]
  - Astigmatism [None]
  - Anisometropia [None]
  - Congenital nose malformation [Not Recovered/Not Resolved]
  - Premature baby [None]
  - Visual impairment [Not Recovered/Not Resolved]
  - Foetal exposure during pregnancy [Unknown]
  - Dysmorphism [Not Recovered/Not Resolved]
  - Autism [None]
  - Dysmorphism [Not Recovered/Not Resolved]
  - Developmental delay [Not Recovered/Not Resolved]
  - Psychomotor skills impaired [Not Recovered/Not Resolved]
  - Plagiocephaly [Not Recovered/Not Resolved]
  - Talipes [Unknown]
  - Laryngitis [None]
  - Conjunctivitis [None]
  - Hepatomegaly [None]
  - Dacryostenosis congenital [None]
  - Congenital infection [Not Recovered/Not Resolved]
  - Foetal anticonvulsant syndrome [Not Recovered/Not Resolved]
  - Amblyopia [None]
  - Strabismus [None]
  - Hypotonia neonatal [None]

NARRATIVE: CASE EVENT DATE: 200910
